FAERS Safety Report 5365954-8 (Version None)
Quarter: 2007Q2

REPORT INFORMATION
  Report Type: 
  Country: None (occurrence: None)
  Receive Date: 20070611
  Receipt Date: 20070314
  Transmission Date: 20071010
  Serious: Yes (Other)
  Sender: FDA-Public Use
  Company Number: USA-2007-0026771

PATIENT
  Sex: Male

DRUGS (4)
  1. OXYCONTIN [Suspect]
     Indication: DRUG ABUSER
  2. ALCOHOL (ETHANOL) [Suspect]
     Indication: DRUG ABUSER
     Dosage: ORAL
     Route: 048
  3. MARIJUANA (CANNABIS) [Suspect]
     Indication: DRUG ABUSER
     Dosage: INHALATION
     Route: 055
  4. HEROIN (DIAMORPHINE) [Suspect]
     Indication: DRUG ABUSER

REACTIONS (2)
  - DRUG DEPENDENCE [None]
  - SUBSTANCE ABUSE [None]
